FAERS Safety Report 5357281-X (Version None)
Quarter: 2007Q2

REPORT INFORMATION
  Report Type: 
  Country: None (occurrence: None)
  Receive Date: 20070612
  Receipt Date: 20070612
  Transmission Date: 20071010
  Serious: Yes (Other)
  Sender: FDA-Public Use
  Company Number: None

PATIENT
  Age: 16 Year
  Sex: Female
  Weight: 56.6996 kg

DRUGS (1)
  1. DEPO-PROVERA [Suspect]
     Indication: OVARIAN CYST
     Dosage: EVERY 3 MONTHS IM
     Route: 030
     Dates: start: 20000310, end: 20000910

REACTIONS (7)
  - AMENORRHOEA [None]
  - INFERTILITY FEMALE [None]
  - MIGRAINE [None]
  - SALPINGITIS [None]
  - SWELLING [None]
  - THYROID DISORDER [None]
  - WEIGHT INCREASED [None]
